FAERS Safety Report 12432926 (Version 4)
Quarter: 2017Q1

REPORT INFORMATION
  Report Type: Report from Study
  Country: JP (occurrence: JP)
  Receive Date: 20160603
  Receipt Date: 20170124
  Transmission Date: 20170428
  Serious: Yes (Death)
  Sender: FDA-Public Use
  Company Number: JP-009507513-1606JPN001223

PATIENT
  Sex: Male

DRUGS (8)
  1. VAGOSTIGMIN (NEOSTIGMINE BROMIDE) [Concomitant]
     Indication: SPONDYLITIS
     Dosage: 3 G, TID
     Route: 048
     Dates: start: 20150829
  2. MAGMITT [Concomitant]
     Active Substance: MAGNESIUM OXIDE
     Indication: SPONDYLITIS
     Dosage: 500 MG, BID
     Route: 048
     Dates: start: 20150829
  3. ZOLPIDEM TARTRATE. [Concomitant]
     Active Substance: ZOLPIDEM TARTRATE
     Dosage: 10 MG, QD
     Route: 048
     Dates: start: 20150829
  4. DAPTOMYCIN. [Suspect]
     Active Substance: DAPTOMYCIN
     Indication: SKIN INFECTION
     Dosage: 4 MG/KG, QD
     Route: 041
     Dates: start: 20150829, end: 20150911
  5. GASCON (DIMETHICONE) [Concomitant]
     Active Substance: DIMETHICONE
     Indication: SPONDYLITIS
     Dosage: 40 MG, TID
     Route: 048
     Dates: start: 20150829
  6. FERROUS CITRATE [Concomitant]
     Active Substance: FERROUS CITRATE
     Indication: SPONDYLITIS
     Dosage: 50 MG, BID
     Route: 048
     Dates: start: 20150829
  7. TOKAKU-JOKI-TO [Concomitant]
     Indication: SPONDYLITIS
     Dosage: 1 G, TID, FORMULATION: POWDER
     Route: 048
     Dates: start: 20150829
  8. SARPOGRELATE HYDROCHLORIDE [Concomitant]
     Active Substance: SARPOGRELATE
     Indication: SPONDYLITIS
     Dosage: 100 MG, TID
     Route: 048
     Dates: start: 20150829

REACTIONS (2)
  - Interstitial lung disease [Fatal]
  - Drug ineffective [Unknown]

NARRATIVE: CASE EVENT DATE: 2015
